FAERS Safety Report 20474481 (Version 1)
Quarter: 2022Q1

REPORT INFORMATION
  Report Type: Spontaneous
  Country: US (occurrence: None)
  Receive Date: 20220214
  Receipt Date: 20220214
  Transmission Date: 20220423
  Serious: Yes (Hospitalization)
  Sender: FDA-Public Use
  Company Number: None

PATIENT
  Sex: Male

DRUGS (5)
  1. VIGABATRIN [Suspect]
     Active Substance: VIGABATRIN
  2. CLOBAZAM SUS [Concomitant]
  3. DEPAKOTE TAB [Concomitant]
  4. KLONOPIN TAB [Concomitant]
  5. RUFINAMIDE TAB [Concomitant]

REACTIONS (3)
  - Seizure [None]
  - Vomiting [None]
  - Therapy interrupted [None]
